FAERS Safety Report 7111959-6 (Version None)
Quarter: 2010Q4

REPORT INFORMATION
  Report Type: 
  Country: None (occurrence: None)
  Receive Date: 20101119
  Receipt Date: 20101108
  Transmission Date: 20110411
  Serious: Yes (Hospitalization)
  Sender: FDA-Public Use
  Company Number: DE-JNJFOC-20101101909

PATIENT
  Age: 46 Year
  Sex: Female

DRUGS (12)
  1. RISPERDAL [Suspect]
     Indication: ILL-DEFINED DISORDER
     Route: 048
  2. RISPERDAL [Suspect]
     Route: 048
  3. RISPERDAL [Suspect]
     Route: 048
  4. RISPERDAL [Suspect]
     Route: 048
  5. ERGENYL [Suspect]
     Indication: ILL-DEFINED DISORDER
     Route: 048
  6. ERGENYL [Suspect]
     Route: 048
  7. ERGENYL [Suspect]
     Route: 048
  8. LORAZEPAM [Concomitant]
     Indication: ILL-DEFINED DISORDER
     Route: 065
  9. LORAZEPAM [Concomitant]
     Route: 065
  10. LORAZEPAM [Concomitant]
     Route: 065
  11. LORAZEPAM [Concomitant]
     Route: 065
  12. LEVOTHYROXINE SODIUM [Concomitant]
     Indication: ILL-DEFINED DISORDER
     Route: 065

REACTIONS (5)
  - AFFECT LABILITY [None]
  - AKATHISIA [None]
  - DEPRESSION [None]
  - FEELING ABNORMAL [None]
  - RESTLESSNESS [None]
